FAERS Safety Report 25132411 (Version 1)
Quarter: 2025Q1

REPORT INFORMATION
  Report Type: Spontaneous
  Country: BE (occurrence: BE)
  Receive Date: 20250328
  Receipt Date: 20250328
  Transmission Date: 20250409
  Serious: Yes (Hospitalization)
  Sender: NOVARTIS
  Company Number: BE-002147023-NVSC2025BE050373

PATIENT
  Age: 81 Year

DRUGS (1)
  1. LEQVIO [Suspect]
     Active Substance: INCLISIRAN SODIUM
     Indication: Product used for unknown indication
     Route: 065

REACTIONS (3)
  - Delusion [Unknown]
  - Hallucination [Unknown]
  - Aggression [Unknown]
